FAERS Safety Report 25596504 (Version 1)
Quarter: 2025Q3

REPORT INFORMATION
  Report Type: Spontaneous
  Country: US (occurrence: US)
  Receive Date: 20250723
  Receipt Date: 20250723
  Transmission Date: 20251020
  Serious: Yes (Other)
  Sender: SANOFI AVENTIS
  Company Number: US-SA-2025SA210499

PATIENT
  Age: 81 Year
  Sex: Female

DRUGS (1)
  1. LANTUS [Suspect]
     Active Substance: INSULIN GLARGINE
     Indication: Blood glucose increased
     Dosage: UNK, QD
     Route: 058

REACTIONS (3)
  - Diabetes mellitus inadequate control [Unknown]
  - Confusional state [Unknown]
  - Memory impairment [Unknown]
